FAERS Safety Report 6667698-9 (Version None)
Quarter: 2010Q2

REPORT INFORMATION
  Report Type: 
  Country: None (occurrence: None)
  Receive Date: 20100405
  Receipt Date: 20100326
  Transmission Date: 20101027
  Serious: Yes (Death, Hospitalization, Disabling)
  Sender: FDA-Public Use
  Company Number: GB-TEVA-183420ISR

PATIENT
  Age: 91 Year
  Sex: Female
  Weight: 48.1 kg

DRUGS (1)
  1. TRIMETHOPRIM [Suspect]
     Indication: URINARY TRACT INFECTION
     Route: 048
     Dates: start: 20081103, end: 20081110

REACTIONS (3)
  - BRONCHOPNEUMONIA [None]
  - RASH MACULO-PAPULAR [None]
  - TUBULOINTERSTITIAL NEPHRITIS [None]
